FAERS Safety Report 23032127 (Version 1)
Quarter: 2023Q4

REPORT INFORMATION
  Report Type: Spontaneous
  Country: US (occurrence: US)
  Receive Date: 20231005
  Receipt Date: 20231005
  Transmission Date: 20240109
  Serious: Yes (Death, Other)
  Sender: FDA-Public Use
  Company Number: US-AMGEN-USASP2023174436

PATIENT
  Age: 31 Year
  Sex: Female

DRUGS (8)
  1. RITUXIMAB [Suspect]
     Active Substance: RITUXIMAB
     Indication: Central nervous system lymphoma
     Dosage: UNK
     Route: 065
  2. RITUXIMAB [Suspect]
     Active Substance: RITUXIMAB
     Indication: Ocular lymphoma
  3. METHOTREXATE [Concomitant]
     Active Substance: METHOTREXATE
     Indication: Central nervous system lymphoma
     Dosage: UNK
  4. METHOTREXATE [Concomitant]
     Active Substance: METHOTREXATE
     Indication: Ocular lymphoma
  5. CYTARABINE [Concomitant]
     Active Substance: CYTARABINE
     Indication: Central nervous system lymphoma
  6. CYTARABINE [Concomitant]
     Active Substance: CYTARABINE
     Indication: Ocular lymphoma
  7. THIOTEPA [Concomitant]
     Active Substance: THIOTEPA
     Indication: Central nervous system lymphoma
  8. THIOTEPA [Concomitant]
     Active Substance: THIOTEPA
     Indication: Ocular lymphoma

REACTIONS (5)
  - Sepsis [Fatal]
  - Ocular lymphoma [Unknown]
  - Corneal disorder [Recovered/Resolved]
  - General physical health deterioration [Unknown]
  - Cataract subcapsular [Unknown]
